FAERS Safety Report 7214699-8 (Version None)
Quarter: 2011Q1

REPORT INFORMATION
  Report Type: 
  Country: None (occurrence: None)
  Receive Date: 20110107
  Receipt Date: 20091201
  Transmission Date: 20110831
  Serious: No
  Sender: FDA-Public Use
  Company Number: A0832499A

PATIENT
  Age: 66 Year
  Sex: Female

DRUGS (16)
  1. GLUCOSAMINE [Concomitant]
  2. CELLCEPT [Concomitant]
  3. VICODIN [Concomitant]
  4. CRANBERRY [Concomitant]
  5. RAPAMUNE [Concomitant]
  6. EVISTA [Concomitant]
  7. ZINC [Concomitant]
  8. VITAMIN B-12 [Concomitant]
  9. RED YEAST RICE [Concomitant]
  10. ASPIRIN [Concomitant]
  11. IRON [Concomitant]
  12. PREDNISOLONE [Concomitant]
  13. PLAVIX [Concomitant]
  14. CINNAMON [Concomitant]
  15. LOVAZA [Suspect]
     Dosage: 2G TWICE PER DAY
     Route: 048
     Dates: start: 20091030
  16. FOSAMAX [Concomitant]

REACTIONS (1)
  - MYALGIA [None]
